FAERS Safety Report 8348556-0 (Version None)
Quarter: 2012Q2

REPORT INFORMATION
  Report Type: 
  Country: None (occurrence: None)
  Receive Date: 20120509
  Receipt Date: 20120426
  Transmission Date: 20120825
  Serious: Yes (Death, Hospitalization, Other)
  Sender: FDA-Public Use
  Company Number: US-MYLANLABS-2009AC000038

PATIENT
  Sex: Female
  Weight: 47.63 kg

DRUGS (34)
  1. CLONIDINE [Concomitant]
  2. MAGNESIUM OXIDE [Concomitant]
  3. HEPARIN [Concomitant]
  4. NORVASC [Concomitant]
  5. LEXAPRO [Concomitant]
  6. ZOCOR [Concomitant]
  7. ALDACTONE [Concomitant]
  8. COMBIVENT [Concomitant]
  9. WELLBUTRIN [Concomitant]
  10. ANTIVERT [Concomitant]
  11. AGGRENOX [Concomitant]
  12. ATROVENT [Concomitant]
  13. PLAVIX [Concomitant]
  14. LOTENSIN [Concomitant]
  15. DIPYRIDAMOLE [Concomitant]
  16. ATENOLOL [Concomitant]
  17. LOTREL [Concomitant]
  18. FOLIC ACID [Concomitant]
  19. BENICAR [Concomitant]
  20. LASIX [Concomitant]
  21. LOPRESSOR [Concomitant]
  22. ISOSORBIDE DINITRATE [Concomitant]
  23. SPIRONOLACTONE [Concomitant]
  24. COREG [Concomitant]
  25. COUMADIN [Concomitant]
  26. DOBUTAMINE HCL [Concomitant]
  27. ALLEGRA [Concomitant]
  28. DIGOXIN [Suspect]
     Indication: HEART RATE IRREGULAR
     Route: 048
     Dates: start: 20020629
  29. OMNICEF /00497602/ [Concomitant]
  30. ASPIRIN [Concomitant]
  31. IMDUR [Concomitant]
  32. NASONEX [Concomitant]
  33. PAXIL [Concomitant]
  34. ACETAMINOPHEN [Concomitant]

REACTIONS (71)
  - INJURY [None]
  - EMOTIONAL DISTRESS [None]
  - HYPERTENSION [None]
  - SYNCOPE [None]
  - SINUS CONGESTION [None]
  - CORONARY ARTERY STENOSIS [None]
  - ASPIRATION [None]
  - ILL-DEFINED DISORDER [None]
  - PAIN [None]
  - HEMIPARESIS [None]
  - HYPOAESTHESIA [None]
  - APHASIA [None]
  - PYREXIA [None]
  - HYPERLIPIDAEMIA [None]
  - LACUNAR INFARCTION [None]
  - OEDEMA PERIPHERAL [None]
  - DIZZINESS [None]
  - NAUSEA [None]
  - CEREBROVASCULAR ACCIDENT [None]
  - EJECTION FRACTION DECREASED [None]
  - DYSPHAGIA [None]
  - BRAIN STEM INFARCTION [None]
  - CORONARY ARTERY OCCLUSION [None]
  - CHRONIC OBSTRUCTIVE PULMONARY DISEASE [None]
  - RHINORRHOEA [None]
  - ASTHENIA [None]
  - THROMBOCYTOSIS [None]
  - ARTERIOSCLEROSIS [None]
  - TOXICITY TO VARIOUS AGENTS [None]
  - CATHETERISATION CARDIAC [None]
  - VENTRICULAR HYPOKINESIA [None]
  - MALNUTRITION [None]
  - FACIAL PARESIS [None]
  - PHYSICAL EXAMINATION ABNORMAL [None]
  - NUCLEAR MAGNETIC RESONANCE IMAGING ABNORMAL [None]
  - SINUS BRADYCARDIA [None]
  - ECONOMIC PROBLEM [None]
  - PULMONARY OEDEMA [None]
  - CAROTID ARTERY STENOSIS [None]
  - VENTRICULAR TACHYCARDIA [None]
  - DIASTOLIC DYSFUNCTION [None]
  - BALANCE DISORDER [None]
  - PRURITUS [None]
  - DYSARTHRIA [None]
  - HEADACHE [None]
  - MENTAL STATUS CHANGES [None]
  - SCOLIOSIS [None]
  - CONGESTIVE CARDIOMYOPATHY [None]
  - LEUKOCYTOSIS [None]
  - DEATH [None]
  - CHEST PAIN [None]
  - VISION BLURRED [None]
  - TROPONIN INCREASED [None]
  - LETHARGY [None]
  - SINUS DISORDER [None]
  - CARDIAC FAILURE CONGESTIVE [None]
  - CEREBRAL ISCHAEMIA [None]
  - LEFT VENTRICULAR HYPERTROPHY [None]
  - FATIGUE [None]
  - GAIT DISTURBANCE [None]
  - ATAXIA [None]
  - NERVOUS SYSTEM DISORDER [None]
  - ACCELERATED HYPERTENSION [None]
  - THROMBOCYTOPENIA [None]
  - CARDIOMYOPATHY [None]
  - UNRESPONSIVE TO STIMULI [None]
  - DYSPNOEA EXERTIONAL [None]
  - PARAESTHESIA [None]
  - TEARFULNESS [None]
  - CARDIOMEGALY [None]
  - VISUAL IMPAIRMENT [None]
